FAERS Safety Report 4752937-1 (Version None)
Quarter: 2005Q3

REPORT INFORMATION
  Report Type: 
  Country: None (occurrence: None)
  Receive Date: 20050823
  Receipt Date: 20050609
  Transmission Date: 20060218
  Serious: Yes (Hospitalization, Other)
  Sender: FDA-Public Use
  Company Number: 19177

PATIENT
  Sex: Female
  Weight: 47.1741 kg

DRUGS (5)
  1. CARBOPLATIN [Suspect]
     Indication: OVARIAN CANCER
     Dosage: 120MG/IVPB
     Route: 042
     Dates: start: 20050501
  2. COMPAZINE [Concomitant]
  3. THALIDOMIDE [Concomitant]
  4. LIPITOR [Concomitant]
  5. OXYCONTIN [Concomitant]

REACTIONS (3)
  - CHEST PAIN [None]
  - HYPOTENSION [None]
  - RASH [None]
